FAERS Safety Report 21991341 (Version 6)
Quarter: 2024Q1

REPORT INFORMATION
  Report Type: Report from Study
  Country: US (occurrence: US)
  Receive Date: 20230214
  Receipt Date: 20240117
  Transmission Date: 20240410
  Serious: Yes (Other)
  Sender: FDA-Public Use
  Company Number: US-002147023-NVSC2023US030816

PATIENT
  Sex: Female

DRUGS (1)
  1. KESIMPTA [Suspect]
     Active Substance: OFATUMUMAB
     Indication: Multiple sclerosis
     Dosage: UNK
     Route: 058
     Dates: start: 20220313

REACTIONS (6)
  - Multiple sclerosis relapse [Unknown]
  - Temperature intolerance [Unknown]
  - Paraesthesia [Not Recovered/Not Resolved]
  - Respiratory tract infection [Unknown]
  - Bacterial vaginosis [Recovered/Resolved]
  - Neuralgia [Unknown]
